FAERS Safety Report 25092158 (Version 1)
Quarter: 2025Q1

REPORT INFORMATION
  Report Type: Report from Study
  Country: BR (occurrence: BR)
  Receive Date: 20250319
  Receipt Date: 20250319
  Transmission Date: 20250409
  Serious: Yes (Hospitalization, Other)
  Sender: BOEHRINGER INGELHEIM
  Company Number: BR-BoehringerIngelheim-2025-BI-005729

PATIENT
  Age: 88 Year
  Sex: Female
  Weight: 53 kg

DRUGS (5)
  1. LINAGLIPTIN [Suspect]
     Active Substance: LINAGLIPTIN
     Indication: Diabetes mellitus
  2. Insulina Aprida [Concomitant]
     Indication: Product used for unknown indication
  3. Insulina Lantus [Concomitant]
     Indication: Product used for unknown indication
  4. MONOCORDIL [Concomitant]
     Active Substance: ISOSORBIDE MONONITRATE
     Indication: Hypertension
  5. BISOPROLOL FUMARATE [Concomitant]
     Active Substance: BISOPROLOL FUMARATE
     Indication: Hypertension

REACTIONS (10)
  - Urinary tract infection [Unknown]
  - Myocardial infarction [Unknown]
  - Feeding disorder [Recovered/Resolved]
  - Aspiration [Unknown]
  - COVID-19 [Unknown]
  - Condition aggravated [Unknown]
  - Lung disorder [Unknown]
  - Renal impairment [Unknown]
  - Asthenia [Unknown]
  - Blood glucose increased [Unknown]

NARRATIVE: CASE EVENT DATE: 20240301
